FAERS Safety Report 15245638 (Version 1)
Quarter: 2018Q3

REPORT INFORMATION
  Report Type: Spontaneous
  Country: US (occurrence: US)
  Receive Date: 20180715
  Receipt Date: 20180715
  Transmission Date: 20181010
  Serious: No
  Sender: FDA-Public Use
  Company Number: None

PATIENT
  Age: 60 Year
  Sex: Male

DRUGS (8)
  1. VITAMIN D [Concomitant]
     Active Substance: CHOLECALCIFEROL
  2. BIOTIN [Concomitant]
     Active Substance: BIOTIN
  3. KIRKLAND SIGNATURE QUIT 2 [Suspect]
     Active Substance: NICOTINE
     Route: 048
     Dates: start: 20160131, end: 20180501
  4. VITAMIN B [Concomitant]
     Active Substance: VITAMIN B
  5. CLOBETASOL [Concomitant]
     Active Substance: CLOBETASOL
  6. VITAMIN C [Concomitant]
     Active Substance: ASCORBIC ACID
  7. TUMERIC [Concomitant]
     Active Substance: HERBALS\TURMERIC
  8. COQ10 [Concomitant]
     Active Substance: UBIDECARENONE

REACTIONS (3)
  - Incorrect route of drug administration [None]
  - Dental caries [None]
  - Mouth ulceration [None]
